FAERS Safety Report 6547927-2 (Version None)
Quarter: 2010Q1

REPORT INFORMATION
  Report Type: 
  Country: None (occurrence: None)
  Receive Date: 20100124
  Receipt Date: 20091124
  Transmission Date: 20100710
  Serious: No
  Sender: FDA-Public Use
  Company Number: US-ALEXION-A200901014

PATIENT
  Sex: Female

DRUGS (2)
  1. SOLIRIS [Suspect]
     Dosage: UNK
  2. STEROIDS [Concomitant]

REACTIONS (4)
  - FATIGUE [None]
  - GINGIVAL PAIN [None]
  - MIGRAINE [None]
  - SENSITIVITY OF TEETH [None]
